FAERS Safety Report 19428359 (Version 1)
Quarter: 2021Q2

REPORT INFORMATION
  Report Type: Spontaneous
  Country: US (occurrence: US)
  Receive Date: 20210616
  Receipt Date: 20210616
  Transmission Date: 20210717
  Serious: Yes (Other)
  Sender: FDA-Public Use
  Company Number: US-ASTRAZENECA-2021A518006

PATIENT
  Age: 32 Year
  Sex: Female
  Weight: 96.6 kg

DRUGS (10)
  1. SEROQUEL [Suspect]
     Active Substance: QUETIAPINE FUMARATE
     Indication: DEPRESSION
     Dosage: 800 MG IN THE EVENING AND 200 MG IN THE MORNING TWO TIMES A DAY 1000 MG
     Route: 048
     Dates: start: 1999, end: 2012
  2. SEROQUEL [Suspect]
     Active Substance: QUETIAPINE FUMARATE
     Indication: ELECTROENCEPHALOGRAM
     Dosage: 800 MG IN THE EVENING AND 200 MG IN THE MORNING TWO TIMES A DAY 1000 MG
     Route: 048
     Dates: start: 1999, end: 2012
  3. PFIZER?BIONTECH COVID?19 VACCINE [Concomitant]
     Active Substance: TOZINAMERAN
  4. TALDOL [Concomitant]
     Dosage: 1 MG IN THE MORNING
     Dates: start: 20210525
  5. SEROQUEL XR [Suspect]
     Active Substance: QUETIAPINE FUMARATE
     Indication: HALLUCINATION
     Dosage: 500.0MG UNKNOWN
     Route: 048
     Dates: start: 2012
  6. SEROQUEL XR [Suspect]
     Active Substance: QUETIAPINE FUMARATE
     Indication: DEPRESSION
     Dosage: 500.0MG UNKNOWN
     Route: 048
     Dates: start: 2012
  7. SEROQUEL XR [Suspect]
     Active Substance: QUETIAPINE FUMARATE
     Indication: ELECTROENCEPHALOGRAM
     Dosage: 500.0MG UNKNOWN
     Route: 048
     Dates: start: 2012
  8. SEROQUEL [Suspect]
     Active Substance: QUETIAPINE FUMARATE
     Indication: HALLUCINATION
     Dosage: 800 MG IN THE EVENING AND 200 MG IN THE MORNING TWO TIMES A DAY 1000 MG
     Route: 048
     Dates: start: 1999, end: 2012
  9. SEROQUEL [Suspect]
     Active Substance: QUETIAPINE FUMARATE
     Indication: MOOD ALTERED
     Dosage: 800 MG IN THE EVENING AND 200 MG IN THE MORNING TWO TIMES A DAY 1000 MG
     Route: 048
     Dates: start: 1999, end: 2012
  10. SEROQUEL XR [Suspect]
     Active Substance: QUETIAPINE FUMARATE
     Indication: MOOD ALTERED
     Dosage: 500.0MG UNKNOWN
     Route: 048
     Dates: start: 2012

REACTIONS (11)
  - Affective disorder [Unknown]
  - Drug ineffective [Unknown]
  - Exposure during pregnancy [Unknown]
  - Sleep disorder [Unknown]
  - Adverse event [Unknown]
  - Hallucination [Unknown]
  - Intentional dose omission [Unknown]
  - Depression [Unknown]
  - Uterine pain [Recovered/Resolved]
  - Symptom recurrence [Unknown]
  - Product dose omission issue [Unknown]

NARRATIVE: CASE EVENT DATE: 2011
